FAERS Safety Report 7239148-5 (Version None)
Quarter: 2011Q1

REPORT INFORMATION
  Report Type: 
  Country: None (occurrence: None)
  Receive Date: 20110119
  Receipt Date: 20110119
  Transmission Date: 20110831
  Serious: Yes (Hospitalization)
  Sender: FDA-Public Use
  Company Number: None

PATIENT
  Age: 69 Year
  Sex: Female
  Weight: 64.8644 kg

DRUGS (2)
  1. ANASTROZOLE [Suspect]
     Indication: BREAST CANCER
     Dosage: 1 MG
     Dates: start: 20101230, end: 20101230
  2. ARIMIDEX [Suspect]

REACTIONS (7)
  - BREAST SWELLING [None]
  - PAIN [None]
  - PRODUCT SUBSTITUTION ISSUE [None]
  - DRUG HYPERSENSITIVITY [None]
  - PYREXIA [None]
  - BREAST DISCOLOURATION [None]
  - BREAST PAIN [None]
